FAERS Safety Report 9129064 (Version 1)
Quarter: 2013Q1

REPORT INFORMATION
  Report Type: Spontaneous
  Country: US (occurrence: US)
  Receive Date: 20130125
  Receipt Date: 20130125
  Transmission Date: 20140127
  Serious: Yes (Other)
  Sender: FDA-Public Use
  Company Number: US-JNJFOC-20130108709

PATIENT
  Sex: Male
  Weight: 92.99 kg

DRUGS (9)
  1. XARELTO [Suspect]
     Indication: CEREBROVASCULAR ACCIDENT PROPHYLAXIS
     Route: 048
  2. XARELTO [Suspect]
     Indication: CEREBROVASCULAR ACCIDENT PROPHYLAXIS
     Route: 048
     Dates: start: 2012
  3. XARELTO [Suspect]
     Indication: ATRIAL FIBRILLATION
     Route: 048
  4. XARELTO [Suspect]
     Indication: ATRIAL FIBRILLATION
     Route: 048
     Dates: start: 2012
  5. DIOVAN [Concomitant]
     Indication: HYPERTENSION
     Route: 048
  6. DIOVAN [Concomitant]
     Indication: HYPERTENSION
     Route: 048
  7. CORTISONE [Concomitant]
     Indication: BACK PAIN
     Route: 065
  8. HYALURONIC ACID [Concomitant]
     Indication: ARTHROPATHY
     Dosage: EVERY 3 TO 4 MONTHS
     Route: 065
  9. UNKNOWN MEDICATION [Concomitant]
     Indication: PROSTATE CANCER
     Route: 065

REACTIONS (3)
  - Arterial occlusive disease [Not Recovered/Not Resolved]
  - Abnormal dreams [Recovering/Resolving]
  - Feeling of body temperature change [Recovering/Resolving]
